FAERS Safety Report 18668228 (Version 1)
Quarter: 2020Q4

REPORT INFORMATION
  Report Type: Spontaneous
  Country: US (occurrence: US)
  Receive Date: 20201228
  Receipt Date: 20201228
  Transmission Date: 20210114
  Serious: Yes (Other)
  Sender: FDA-Public Use
  Company Number: US-BAUSCH-BL-2020-038138

PATIENT
  Sex: Female

DRUGS (3)
  1. APLENZIN [Suspect]
     Active Substance: BUPROPION HYDROBROMIDE
     Indication: PRODUCT USED FOR UNKNOWN INDICATION
     Dosage: STARTED SEVERAL YEARS PRIOR
     Route: 065
  2. APLENZIN [Suspect]
     Active Substance: BUPROPION HYDROBROMIDE
     Route: 065
     Dates: start: 2020
  3. APLENZIN [Suspect]
     Active Substance: BUPROPION HYDROBROMIDE
     Dosage: STARTED RECENTLY
     Route: 065
     Dates: start: 2020, end: 2020

REACTIONS (1)
  - Suicidal ideation [Recovered/Resolved]

NARRATIVE: CASE EVENT DATE: 2020
